FAERS Safety Report 13804056 (Version 1)
Quarter: 2017Q3

REPORT INFORMATION
  Report Type: Spontaneous
  Country: GB (occurrence: GB)
  Receive Date: 20170728
  Receipt Date: 20170728
  Transmission Date: 20171127
  Serious: Yes (Other)
  Sender: FDA-Public Use
  Company Number: GB-BRISTOL-MYERS SQUIBB COMPANY-BMS-2017-064721

PATIENT
  Age: 91 Year
  Sex: Female
  Weight: 57.1 kg

DRUGS (1)
  1. APIXABAN [Suspect]
     Active Substance: APIXABAN
     Indication: PULMONARY EMBOLISM
     Dosage: 5 MG, BID
     Route: 048
     Dates: start: 20170118, end: 20170506

REACTIONS (3)
  - Hemiparesis [Recovered/Resolved with Sequelae]
  - Haemorrhage intracranial [Unknown]
  - Disturbance in attention [Recovered/Resolved with Sequelae]

NARRATIVE: CASE EVENT DATE: 20170506
